FAERS Safety Report 18920797 (Version 1)
Quarter: 2021Q1

REPORT INFORMATION
  Report Type: Spontaneous
  Country: US (occurrence: US)
  Receive Date: 20210222
  Receipt Date: 20210222
  Transmission Date: 20210420
  Serious: No
  Sender: FDA-Public Use
  Company Number: US-APOTEX-2021AP002180

PATIENT
  Sex: Male

DRUGS (1)
  1. CYCLOSPORINE. [Suspect]
     Active Substance: CYCLOSPORINE
     Indication: DERMATITIS ATOPIC
     Dosage: UNK, TID
     Route: 065

REACTIONS (4)
  - Product packaging difficult to open [Unknown]
  - Product package associated injury [Unknown]
  - No adverse event [Unknown]
  - Product use in unapproved indication [Unknown]
